FAERS Safety Report 5303291-8 (Version None)
Quarter: 2007Q2

REPORT INFORMATION
  Report Type: 
  Country: None (occurrence: None)
  Receive Date: 20070420
  Receipt Date: 20070412
  Transmission Date: 20071010
  Serious: Yes (Other)
  Sender: FDA-Public Use
  Company Number: BE-GLAXOSMITHKLINE-B0457601A

PATIENT
  Age: 27 Year
  Sex: Female
  Weight: 64 kg

DRUGS (3)
  1. AUGMENTIN '125' [Suspect]
     Indication: BRONCHOPNEUMONIA
     Dosage: 4G PER DAY
     Route: 048
     Dates: start: 20070104, end: 20070108
  2. PARACETAMOL [Concomitant]
     Route: 048
     Dates: start: 20070104, end: 20070108
  3. MOTILIUM [Concomitant]
     Indication: NAUSEA
     Route: 048
     Dates: start: 20070105, end: 20070111

REACTIONS (9)
  - ABDOMINAL PAIN [None]
  - ANOREXIA [None]
  - BRONCHITIS [None]
  - FATIGUE [None]
  - HEPATITIS [None]
  - HEPATITIS TOXIC [None]
  - NAUSEA [None]
  - PHARYNGOLARYNGEAL PAIN [None]
  - PYREXIA [None]
